FAERS Safety Report 10517776 (Version 2)
Quarter: 2014Q4

REPORT INFORMATION
  Report Type: Spontaneous
  Country: FI (occurrence: FI)
  Receive Date: 20141015
  Receipt Date: 20141015
  Transmission Date: 20150528
  Serious: Yes (Other)
  Sender: FDA-Public Use
  Company Number: FI-AMGEN-FINSP2014066777

PATIENT
  Age: 72 Year
  Sex: Male
  Weight: 68 kg

DRUGS (6)
  1. CYCLOPHOSPHAMIDE. [Concomitant]
     Active Substance: CYCLOPHOSPHAMIDE
     Indication: DIFFUSE LARGE B-CELL LYMPHOMA
     Dosage: 1400 MG, 3 WEEKS
     Route: 042
     Dates: start: 20140826, end: 20140826
  2. DOXORUBICIN [Concomitant]
     Active Substance: DOXORUBICIN
     Indication: DIFFUSE LARGE B-CELL LYMPHOMA
     Dosage: 90 MG, 3 WEEKS
     Route: 042
     Dates: start: 20140826, end: 20140826
  3. NEULASTA [Suspect]
     Active Substance: PEGFILGRASTIM
     Indication: INFECTION PROPHYLAXIS
     Dosage: 6 MG, (TOOK SINGLE DOSE OF EXPIRED NEULASTA SYRINGE)
     Route: 058
     Dates: start: 20140829
  4. VINCRISTINE [Concomitant]
     Active Substance: VINCRISTINE
     Indication: DIFFUSE LARGE B-CELL LYMPHOMA
     Dosage: 2 MG, 3 WEEKS
     Route: 042
     Dates: start: 20140826, end: 20140826
  5. PREDNISOLONE. [Concomitant]
     Active Substance: PREDNISOLONE
     Indication: DIFFUSE LARGE B-CELL LYMPHOMA
     Dosage: 100 MG, 3 WEEKS
     Route: 048
     Dates: start: 20140826, end: 20140830
  6. MABTHERA [Concomitant]
     Active Substance: RITUXIMAB
     Indication: DIFFUSE LARGE B-CELL LYMPHOMA
     Dosage: 1400 MG, 3 WEEKS
     Route: 058
     Dates: start: 20140826, end: 20140826

REACTIONS (1)
  - Expired product administered [Unknown]

NARRATIVE: CASE EVENT DATE: 20140829
